FAERS Safety Report 16761467 (Version 2)
Quarter: 2020Q1

REPORT INFORMATION
  Report Type: Report from Study
  Country: US (occurrence: US)
  Receive Date: 20190830
  Receipt Date: 20200117
  Transmission Date: 20200409
  Serious: Yes (Hospitalization, Other)
  Sender: FDA-Public Use
  Company Number: US-BIOVITRUM-2019US1642

PATIENT
  Sex: Male

DRUGS (1)
  1. KINERET [Suspect]
     Active Substance: ANAKINRA
     Indication: PRODUCT USED FOR UNKNOWN INDICATION
     Route: 058

REACTIONS (6)
  - Urinary tract infection [Unknown]
  - Product dose omission [Unknown]
  - Herpes zoster [Unknown]
  - Gait inability [Not Recovered/Not Resolved]
  - Pharyngitis [Unknown]
  - Dysstasia [Not Recovered/Not Resolved]
